FAERS Safety Report 5999698-6 (Version None)
Quarter: 2008Q4

REPORT INFORMATION
  Report Type: 
  Country: None (occurrence: None)
  Receive Date: 20081215
  Receipt Date: 20081204
  Transmission Date: 20090506
  Serious: Yes (Hospitalization)
  Sender: FDA-Public Use
  Company Number: CH-NOVOPROD-282067

PATIENT
  Age: 83 Year
  Sex: Female

DRUGS (6)
  1. MIXTARD 30 HM PENFILL [Suspect]
     Route: 058
     Dates: end: 20080319
  2. LANTUS [Concomitant]
     Indication: TYPE 1 DIABETES MELLITUS
     Route: 058
     Dates: end: 20080319
  3. ASPIRIN [Concomitant]
     Dosage: 100 MG, QD
     Route: 048
  4. ENATEC-F [Concomitant]
     Dosage: 20 MG, QD
     Route: 048
  5. METO ZEROK [Concomitant]
     Dosage: 95 MG, QD
     Route: 048
  6. FELODIL [Concomitant]
     Dosage: UNKNOWN

REACTIONS (3)
  - CONFUSIONAL STATE [None]
  - HYPOGLYCAEMIA [None]
  - MEDICATION ERROR [None]
